FAERS Safety Report 15696462 (Version 3)
Quarter: 2020Q1

REPORT INFORMATION
  Report Type: Spontaneous
  Country: US (occurrence: US)
  Receive Date: 20181206
  Receipt Date: 20200325
  Transmission Date: 20200409
  Serious: Yes (Other)
  Sender: FDA-Public Use
  Company Number: PHEH2018US051632

PATIENT
  Sex: Male

DRUGS (1)
  1. TASIGNA [Suspect]
     Active Substance: NILOTINIB
     Indication: CHRONIC MYELOID LEUKAEMIA
     Dosage: UNK, BID
     Route: 048
     Dates: start: 20121115, end: 2014

REACTIONS (12)
  - Gastrooesophageal reflux disease [Unknown]
  - Diabetes mellitus [Unknown]
  - Hypothyroidism [Unknown]
  - Coronary artery disease [Unknown]
  - Emotional distress [Unknown]
  - Arthritis [Unknown]
  - Chest pain [Unknown]
  - Arteriosclerosis coronary artery [Unknown]
  - Anal fistula [Unknown]
  - Pain [Unknown]
  - Hypertension [Unknown]
  - Anxiety [Unknown]
